FAERS Safety Report 23330533 (Version 2)
Quarter: 2024Q3

REPORT INFORMATION
  Report Type: Spontaneous
  Country: US (occurrence: US)
  Receive Date: 20231222
  Receipt Date: 20240716
  Transmission Date: 20241016
  Serious: No
  Sender: SANOFI AVENTIS
  Company Number: US-SA-SAC20231219000547

PATIENT
  Age: 57 Year
  Sex: Male
  Weight: 75.2 kg

DRUGS (2)
  1. DUPIXENT [Suspect]
     Active Substance: DUPILUMAB
     Indication: Dermatitis atopic
     Dosage: 600 MG, 1X
     Route: 058
  2. DUPIXENT [Suspect]
     Active Substance: DUPILUMAB
     Dosage: 300 MG, QOW
     Route: 058
     Dates: start: 202312

REACTIONS (6)
  - Scab [Unknown]
  - Dry skin [Unknown]
  - Trismus [Unknown]
  - Wound [Not Recovered/Not Resolved]
  - Rash [Unknown]
  - Drug ineffective [Unknown]
